FAERS Safety Report 22628679 (Version 1)
Quarter: 2023Q2

REPORT INFORMATION
  Report Type: Spontaneous
  Country: US (occurrence: None)
  Receive Date: 20230619
  Receipt Date: 20230619
  Transmission Date: 20230722
  Serious: No
  Sender: FDA-Public Use
  Company Number: None

PATIENT
  Sex: Female

DRUGS (1)
  1. HUMIRA [Suspect]
     Active Substance: ADALIMUMAB
     Indication: Psoriasis
     Dosage: OTHER QUANTITY : 40MG/0.4ML;?OTHER FREQUENCY : EVERY TWO WEEKS;?
     Route: 058
     Dates: start: 20210908

REACTIONS (6)
  - Influenza [None]
  - Infection [None]
  - Rash [None]
  - Discomfort [None]
  - Therapy interrupted [None]
  - Loss of personal independence in daily activities [None]
